FAERS Safety Report 6695847-5 (Version None)
Quarter: 2010Q2

REPORT INFORMATION
  Report Type: 
  Country: None (occurrence: None)
  Receive Date: 20100426
  Receipt Date: 20100419
  Transmission Date: 20101027
  Serious: Yes (Hospitalization)
  Sender: FDA-Public Use
  Company Number: TR-WYE-H14660910

PATIENT
  Sex: Female

DRUGS (3)
  1. RAPAMUNE [Suspect]
     Route: 048
  2. VALSARTAN [Concomitant]
  3. LEVODOPA [Concomitant]

REACTIONS (1)
  - SYNCOPE [None]
